FAERS Safety Report 6315835-8 (Version None)
Quarter: 2009Q3

REPORT INFORMATION
  Report Type: 
  Country: None (occurrence: None)
  Receive Date: 20090820
  Receipt Date: 20070515
  Transmission Date: 20100115
  Serious: Yes (Death, Hospitalization, Other)
  Sender: FDA-Public Use
  Company Number: US-ASTRAZENECA-2006UW21603

PATIENT
  Age: 32131 Day
  Sex: Male
  Weight: 88.9 kg

DRUGS (10)
  1. SEROQUEL [Suspect]
     Indication: DEMENTIA
     Route: 048
     Dates: start: 20050301, end: 20050501
  2. SEROQUEL [Suspect]
     Route: 048
     Dates: start: 20050318
  3. HALDOL [Concomitant]
     Dates: start: 20050317
  4. EXELON [Concomitant]
     Dates: start: 20050313
  5. EXELON [Concomitant]
  6. PLAVIX [Concomitant]
     Dates: start: 20050313
  7. SYNTHROID [Concomitant]
     Dates: start: 20050313
  8. ATIVAN [Concomitant]
     Indication: AGITATION
     Route: 042
     Dates: start: 20050313
  9. PRAVACHOL [Concomitant]
     Dates: start: 20050318
  10. ALTACE [Concomitant]
     Dates: start: 20050318

REACTIONS (4)
  - DEMENTIA [None]
  - DIABETES MELLITUS [None]
  - LOSS OF CONSCIOUSNESS [None]
  - SYNCOPE [None]
